FAERS Safety Report 13758839 (Version 2)
Quarter: 2017Q4

REPORT INFORMATION
  Report Type: Report from Study
  Country: US (occurrence: US)
  Receive Date: 20170717
  Receipt Date: 20171219
  Transmission Date: 20180320
  Serious: Yes (Other)
  Sender: FDA-Public Use
  Company Number: PHEH2017US021738

PATIENT
  Sex: Female
  Weight: 115.19 kg

DRUGS (1)
  1. NEORAL [Suspect]
     Active Substance: CYCLOSPORINE
     Indication: TRANSPLANT
     Dosage: 200 OT IN MORNIG AND 100 OT IN EVENING
     Route: 048

REACTIONS (1)
  - Transplant rejection [Unknown]
